FAERS Safety Report 6615114-5 (Version None)
Quarter: 2010Q1

REPORT INFORMATION
  Report Type: 
  Country: None (occurrence: None)
  Receive Date: 20100226
  Receipt Date: 20100219
  Transmission Date: 20100710
  Serious: Yes (Hospitalization, Other)
  Sender: FDA-Public Use
  Company Number: 2010SP000554

PATIENT
  Age: 60 Year
  Sex: Male

DRUGS (4)
  1. PEG-INTRON [Suspect]
     Indication: HEPATITIS C
     Dosage: SC
     Route: 058
     Dates: start: 20090501, end: 20090801
  2. PEG-INTRON [Suspect]
     Indication: HEPATITIS C
     Dosage: SC
     Route: 058
     Dates: start: 20091211
  3. REBETOL [Suspect]
     Indication: HEPATITIS C
     Dosage: QD;PO; 1200 MG; PO
     Route: 048
     Dates: start: 20090501, end: 20090801
  4. REBETOL [Suspect]
     Indication: HEPATITIS C
     Dosage: QD;PO; 1200 MG; PO
     Route: 048
     Dates: start: 20091211

REACTIONS (3)
  - EYE HAEMORRHAGE [None]
  - FACIAL PALSY [None]
  - VISUAL IMPAIRMENT [None]
